FAERS Safety Report 14755934 (Version 1)
Quarter: 2018Q2

REPORT INFORMATION
  Report Type: Spontaneous
  Country: US (occurrence: US)
  Receive Date: 20180413
  Receipt Date: 20180413
  Transmission Date: 20180711
  Serious: Yes (Other)
  Sender: FDA-Public Use
  Company Number: US-PFIZER INC-2018151083

PATIENT
  Age: 67 Year
  Sex: Female
  Weight: 51.71 kg

DRUGS (2)
  1. IBRANCE [Suspect]
     Active Substance: PALBOCICLIB
     Indication: BREAST CANCER METASTATIC
     Dosage: 125 MG, CYCLIC (CAPSULE TAKEN BY MOUTH ONCE A DAY FOR 21 DAYS FOLLOWED BY 7 DAYS OFF IN A REPEATING)
     Route: 048
     Dates: start: 201706
  2. FASLODEX [Concomitant]
     Active Substance: FULVESTRANT
     Dosage: UNK, MONTHLY

REACTIONS (6)
  - Alopecia [Not Recovered/Not Resolved]
  - Cellulitis [Recovered/Resolved]
  - Infection [Recovered/Resolved]
  - Weight decreased [Recovering/Resolving]
  - White blood cell count decreased [Recovering/Resolving]
  - Decreased appetite [Recovered/Resolved]

NARRATIVE: CASE EVENT DATE: 201707
